FAERS Safety Report 14665950 (Version 1)
Quarter: 2018Q1

REPORT INFORMATION
  Report Type: Report from Study
  Country: US (occurrence: US)
  Receive Date: 20180321
  Receipt Date: 20180321
  Transmission Date: 20180509
  Serious: Yes (Hospitalization)
  Sender: FDA-Public Use
  Company Number: US-MALLINCKRODT-T201801043

PATIENT
  Age: 63 Year
  Sex: Male
  Weight: 108 kg

DRUGS (2)
  1. REPOSITORY CORTICOTROPIN INJECTION [Suspect]
     Active Substance: CORTICOTROPIN
     Indication: NEPHROTIC SYNDROME
     Dosage: 40 UNITS
     Route: 058
  2. REPOSITORY CORTICOTROPIN INJECTION [Suspect]
     Active Substance: CORTICOTROPIN
     Dosage: 80 UNITS / 1 ML, 2 TIMES PER WEEK, TUESDAY + FRIDAY
     Route: 058
     Dates: start: 20170704

REACTIONS (7)
  - Blood glucose increased [Unknown]
  - Blood pressure increased [Unknown]
  - Fall [Unknown]
  - Tremor [Unknown]
  - Muscular weakness [Unknown]
  - Oedema [Unknown]
  - Decreased appetite [Not Recovered/Not Resolved]

NARRATIVE: CASE EVENT DATE: 20180307
